FAERS Safety Report 8946880 (Version 1)
Quarter: 2012Q4

REPORT INFORMATION
  Report Type: 
  Country: ES (occurrence: ES)
  Receive Date: 20121205
  Receipt Date: 20121205
  Transmission Date: 20130627
  Serious: Yes (Death, Other)
  Sender: FDA-Public Use
  Company Number: ES-JNJFOC-20121200434

PATIENT

DRUGS (7)
  1. CLADRIBINE [Suspect]
     Indication: CHRONIC LYMPHOCYTIC LEUKAEMIA
     Route: 065
  2. TRIMETHOPRIM [Concomitant]
     Indication: PROPHYLAXIS
     Route: 065
  3. SULPHAMETHOXAZOLE [Concomitant]
     Indication: PROPHYLAXIS
     Route: 065
  4. FILGRASTIM [Concomitant]
     Indication: PRODUCT USED FOR UNKNOWN INDICATION
     Route: 065
  5. PEGFILGRASTIM [Concomitant]
     Indication: PRODUCT USED FOR UNKNOWN INDICATION
     Route: 065
  6. UNKNOWN MEDICATION [Concomitant]
     Indication: ANTIBIOTIC PROPHYLAXIS
     Route: 065
  7. ANTIVIRAL [Concomitant]
     Indication: ANTIVIRAL PROPHYLAXIS
     Route: 065

REACTIONS (5)
  - Infection [Fatal]
  - Disease progression [Fatal]
  - Death [Fatal]
  - Neutropenia [Unknown]
  - Infection [Unknown]
